FAERS Safety Report 14294667 (Version 2)
Quarter: 2018Q3

REPORT INFORMATION
  Report Type: Spontaneous
  Country: GB (occurrence: GB)
  Receive Date: 20171218
  Receipt Date: 20180702
  Transmission Date: 20181010
  Serious: Yes (Congenital Anomaly)
  Sender: FDA-Public Use
  Company Number: GB-DEXPHARM-20171848

PATIENT
  Age: 14 Year
  Sex: Male

DRUGS (3)
  1. OMEPRAZOLE. [Suspect]
     Active Substance: OMEPRAZOLE
     Indication: OESOPHAGEAL DISORDER
     Dosage: GENERIC.
     Route: 064
  2. OMEPRAZOLE. [Suspect]
     Active Substance: OMEPRAZOLE
     Indication: OESOPHAGEAL DISORDER
     Route: 064
     Dates: end: 2013
  3. OMEPRAZOLE. [Suspect]
     Active Substance: OMEPRAZOLE
     Indication: OESOPHAGEAL DISORDER
     Route: 064
     Dates: end: 2013

REACTIONS (4)
  - Fibrous dysplasia of jaw [Unknown]
  - Dyspraxia [Unknown]
  - Ill-defined disorder [Unknown]
  - Post viral fatigue syndrome [Unknown]

NARRATIVE: CASE EVENT DATE: 2011
